FAERS Safety Report 8261801-5 (Version None)
Quarter: 2012Q2

REPORT INFORMATION
  Report Type: 
  Country: None (occurrence: None)
  Receive Date: 20120405
  Receipt Date: 20120328
  Transmission Date: 20120825
  Serious: No
  Sender: FDA-Public Use
  Company Number: US-BAYER-2012-030636

PATIENT
  Sex: Female

DRUGS (1)
  1. NATAZIA [Suspect]
     Indication: ORAL CONTRACEPTION
     Dosage: 1 DF, QD
     Route: 048
     Dates: start: 20111001

REACTIONS (1)
  - PREGNANCY ON ORAL CONTRACEPTIVE [None]
